FAERS Safety Report 21441263 (Version 1)
Quarter: 2022Q4

REPORT INFORMATION
  Report Type: Spontaneous
  Country: US (occurrence: None)
  Receive Date: 20221010
  Receipt Date: 20221010
  Transmission Date: 20230113
  Serious: Yes (Death)
  Sender: FDA-Public Use
  Company Number: None

PATIENT
  Age: 78 Year
  Sex: Male
  Weight: 168.5 kg

DRUGS (12)
  1. NOREPINEPHRINE [Suspect]
     Active Substance: NOREPINEPHRINE
     Indication: Hypotension
     Dosage: OTHER FREQUENCY : MINUTE;?
     Route: 041
     Dates: start: 20220914, end: 20220914
  2. LACTATED RINGERS SOLUTION [Concomitant]
     Active Substance: CALCIUM CHLORIDE\POTASSIUM CHLORIDE\SODIUM CHLORIDE\SODIUM LACTATE
     Dates: start: 20220913, end: 20220914
  3. VANCOMYCIN [Concomitant]
     Active Substance: VANCOMYCIN
     Dates: start: 20220913, end: 20220914
  4. PIPERACILLIN SODIUM\TAZOBACTAM SODIUM [Concomitant]
     Active Substance: PIPERACILLIN SODIUM\TAZOBACTAM SODIUM
     Dates: start: 20220913, end: 20220914
  5. EPINEPHRINE [Concomitant]
     Active Substance: EPINEPHRINE
     Dates: start: 20220913, end: 20220914
  6. PHENYLEPHRINE [Concomitant]
     Active Substance: PHENYLEPHRINE HYDROCHLORIDE
     Dates: start: 20220914, end: 20220914
  7. DEXTROSE [Concomitant]
     Active Substance: DEXTROSE
     Dates: start: 20220913, end: 20220914
  8. INSULIN LISPRO [Concomitant]
     Active Substance: INSULIN LISPRO
     Dates: start: 20220914, end: 20220914
  9. SODIUM CHLORIDE [Concomitant]
     Active Substance: SODIUM CHLORIDE
     Dates: start: 20220914, end: 20220914
  10. FUROSEMIDE [Concomitant]
     Active Substance: FUROSEMIDE
     Dates: start: 20220914, end: 20220914
  11. SODIUM BICARBONATE [Concomitant]
     Active Substance: SODIUM BICARBONATE
     Dates: start: 20220914, end: 20220914
  12. HYDROCORTISONE SODIUM SUCCINATE [Concomitant]
     Active Substance: HYDROCORTISONE SODIUM SUCCINATE
     Dates: start: 20220914, end: 20220914

REACTIONS (3)
  - Hypotension [None]
  - Acidosis [None]
  - Incorrect dose administered [None]

NARRATIVE: CASE EVENT DATE: 20220914
